FAERS Safety Report 8466126 (Version 3)
Quarter: 2012Q4

REPORT INFORMATION
  Report Type: 
  Country: US (occurrence: US)
  Receive Date: 20120319
  Receipt Date: 20121125
  Transmission Date: 20130627
  Serious: Yes (Hospitalization)
  Sender: FDA-Public Use
  Company Number: US-BAYER-2012-024974

PATIENT
  Age: 41 Year
  Sex: Female
  Weight: 99.77 kg

DRUGS (13)
  1. YAZ [Suspect]
     Indication: PREMENSTRUAL DYSPHORIC DISORDER
     Dosage: UNK
     Dates: start: 20070716, end: 20110503
  2. YAZ [Suspect]
     Indication: HEAVY PERIODS
  3. YAZ [Suspect]
     Indication: FIBROIDS
  4. YASMIN [Suspect]
     Indication: UTERINE FIBROID
     Dosage: UNK
     Dates: start: 20040708, end: 20070716
  5. YASMIN [Suspect]
     Indication: PREMENSTRUAL DYSPHORIC DISORDER
  6. YASMIN [Suspect]
     Indication: HEAVY PERIODS
  7. TOPAMAX [Concomitant]
     Indication: MIGRAINE PROPHYLAXIS
     Dosage: 50 mg, UNK
     Dates: start: 201004, end: 201201
  8. NORVASC [Concomitant]
     Dosage: 10 mg, UNK
  9. MELOXICAM [Concomitant]
     Dosage: 15 mg, UNK
  10. LEXAPRO [Concomitant]
  11. AXERT [Concomitant]
     Dosage: 12.5 mg, UNK
     Dates: start: 2000, end: 2012
  12. ADVAIR [Concomitant]
     Dosage: UNK
     Dates: start: 2007, end: 2009
  13. BACLOFEN [Concomitant]
     Dosage: 10 mg, UNK

REACTIONS (3)
  - Pulmonary embolism [None]
  - Injury [None]
  - Off label use [None]
